FAERS Safety Report 10175415 (Version 1)
Quarter: 2014Q2

REPORT INFORMATION
  Report Type: Report from Study
  Country: BR (occurrence: BR)
  Receive Date: 20140515
  Receipt Date: 20140515
  Transmission Date: 20141212
  Serious: Yes (Hospitalization)
  Sender: FDA-Public Use
  Company Number: BR-US-EMD SERONO, INC.-7290681

PATIENT
  Age: 38 Year
  Sex: Female

DRUGS (3)
  1. REBIF [Suspect]
     Indication: RELAPSING-REMITTING MULTIPLE SCLEROSIS
     Dates: start: 20130515, end: 2014
  2. REBIF [Suspect]
     Dates: start: 20140429
  3. IBUPROFEN [Concomitant]
     Indication: PRODUCT USED FOR UNKNOWN INDICATION

REACTIONS (7)
  - Endometriosis [Unknown]
  - Demyelination [Unknown]
  - Malaise [Unknown]
  - Central nervous system lesion [Unknown]
  - Pain [Unknown]
  - Arthralgia [Unknown]
  - Pyrexia [Unknown]
